FAERS Safety Report 22048301 (Version 1)
Quarter: 2023Q1

REPORT INFORMATION
  Report Type: Report from Study
  Country: US (occurrence: US)
  Receive Date: 20230301
  Receipt Date: 20230301
  Transmission Date: 20230417
  Serious: Yes (Hospitalization)
  Sender: FDA-Public Use
  Company Number: US-ORG100014127-2023000201

PATIENT
  Age: 16 Year
  Sex: Female

DRUGS (11)
  1. LYSODREN [Suspect]
     Active Substance: MITOTANE
     Indication: Adrenocortical carcinoma
     Dosage: TAKE 3 TABLETS BY MOUTH THREE TIME DAILY
     Route: 048
     Dates: start: 20230113, end: 20230120
  2. LYSODREN [Suspect]
     Active Substance: MITOTANE
     Indication: Adrenocortical carcinoma
     Route: 048
     Dates: start: 20230127
  3. Aldactone tablet 50mg [Concomitant]
     Indication: Product used for unknown indication
  4. Bactrim ds tablet 800-160 [Concomitant]
     Indication: Product used for unknown indication
  5. FUROSEMIDE [Concomitant]
     Active Substance: FUROSEMIDE
     Indication: Product used for unknown indication
  6. labetalol tablet 200mg [Concomitant]
     Indication: Product used for unknown indication
  7. Miralax pow 3350 (polyethylene glycol) [Concomitant]
     Indication: Product used for unknown indication
  8. olanzapine tablet 5mg [Concomitant]
     Indication: Product used for unknown indication
  9. palonosetron inj 0.25mg/5 [Concomitant]
     Indication: Product used for unknown indication
  10. Vasotec tablet 10mg [Concomitant]
     Indication: Product used for unknown indication
  11. Zoloft tablet 25mg [Concomitant]
     Indication: Product used for unknown indication

REACTIONS (1)
  - Stomatitis [Recovered/Resolved]

NARRATIVE: CASE EVENT DATE: 20230120
